FAERS Safety Report 12401223 (Version 1)
Quarter: 2016Q2

REPORT INFORMATION
  Report Type: Spontaneous
  Country: US (occurrence: None)
  Receive Date: 20160524
  Receipt Date: 20160524
  Transmission Date: 20160815
  Serious: Yes (Hospitalization)
  Sender: FDA-Public Use
  Company Number: None

PATIENT
  Age: 74 Year
  Sex: Male
  Weight: 53.2 kg

DRUGS (2)
  1. GLIPIZIDE. [Suspect]
     Active Substance: GLIPIZIDE
     Indication: DIABETES MELLITUS
     Route: 048
     Dates: start: 20110816, end: 20160316
  2. INSULIN [Suspect]
     Active Substance: INSULIN NOS
     Indication: DIABETES MELLITUS
     Route: 058
     Dates: start: 20110816

REACTIONS (6)
  - Loss of consciousness [None]
  - Bradycardia [None]
  - Blood glucose decreased [None]
  - Hypoglycaemia [None]
  - Fall [None]
  - Vagus nerve disorder [None]

NARRATIVE: CASE EVENT DATE: 20160315
